FAERS Safety Report 12951069 (Version 1)
Quarter: 2016Q4

REPORT INFORMATION
  Report Type: Spontaneous
  Country: GB (occurrence: GB)
  Receive Date: 20161117
  Receipt Date: 20161117
  Transmission Date: 20170207
  Serious: Yes (Other)
  Sender: FDA-Public Use
  Company Number: GB-PFIZER INC-2016530298

PATIENT
  Age: 70 Year
  Sex: Female
  Weight: 70 kg

DRUGS (19)
  1. METFORMIN [Concomitant]
     Active Substance: METFORMIN HYDROCHLORIDE
     Dosage: 1 DF ONCE DAILY (NIGHT)
     Dates: start: 20151009
  2. ATORVASTATIN [Concomitant]
     Active Substance: ATORVASTATIN
     Dosage: 1 DF, 1X/DAY(AT NIGHT)
     Dates: start: 20160321
  3. CLARITHROMYCIN. [Concomitant]
     Active Substance: CLARITHROMYCIN
     Dosage: 2 DF TWICE DAILY (IF TOLERATED)
     Dates: start: 20161021, end: 20161028
  4. FLUCLOXACILLIN [Concomitant]
     Active Substance: FLUCLOXACILLIN
     Dosage: 1 DF, 4X/DAY
     Dates: start: 20161020, end: 20161027
  5. FUROSEMIDE. [Concomitant]
     Active Substance: FUROSEMIDE
     Dosage: 1 DF ONCE DAILY (EACH MORNING)
     Dates: start: 20160819, end: 20160826
  6. OMEPRAZOLE. [Concomitant]
     Active Substance: OMEPRAZOLE
     Dosage: 1 DF, 1X/DAY
     Dates: start: 20151009
  7. VENLAFAXINE [Concomitant]
     Active Substance: VENLAFAXINE HYDROCHLORIDE
     Dosage: 1 DF, 2X/DAY
     Dates: start: 20151009
  8. BENDROFLUMETHIAZIDE [Concomitant]
     Active Substance: BENDROFLUMETHIAZIDE
     Dosage: 1 DF, 1X/DAY
     Dates: start: 20151103
  9. TRIMETHOPRIM. [Concomitant]
     Active Substance: TRIMETHOPRIM
     Dosage: 1 DF, 2X/DAY
     Dates: start: 20160921, end: 20160924
  10. FLUCONAZOLE. [Suspect]
     Active Substance: FLUCONAZOLE
     Dosage: 50 MG, 1X/DAY
     Route: 048
     Dates: start: 20161103
  11. FENTANYL. [Concomitant]
     Active Substance: FENTANYL
     Dosage: 1 DF THREE TIMES DAILY (ONE PATCH TO A HAIRLESS SITE)
     Dates: start: 20160815, end: 20160819
  12. NAPROXEN. [Concomitant]
     Active Substance: NAPROXEN
     Dosage: 1 DF TWICE DAILY (AFTER FOOD)
     Dates: start: 20160819
  13. SOFRADEX /00049501/ [Concomitant]
     Dosage: 2-3 DROPS THREE TIMES
     Dates: start: 20161020, end: 20161027
  14. BUTRANS [Interacting]
     Active Substance: BUPRENORPHINE
     Dosage: WHEN REDUCING THE DOS...10MCG/HR PATCH
     Dates: start: 20160516
  15. GABAPENTIN. [Concomitant]
     Active Substance: GABAPENTIN
     Dosage: 3 DF, 3X/DAY
     Dates: start: 20151009
  16. EUMOVATE [Concomitant]
     Active Substance: CLOBETASONE BUTYRATE
     Dosage: APPLY TO THE LEFT EAR AREA 1-2 TIMES/DAY
     Dates: start: 20161020
  17. MOVICOL [Concomitant]
     Active Substance: POLYETHYLENE GLYCOL 3350\POTASSIUM CHLORIDE\SODIUM BICARBONATE\SODIUM CHLORIDE
     Indication: FAECES HARD
     Dosage: USE ONE OR MORE DAILY
     Dates: start: 20151009
  18. CHLORAMPHENICOL [Concomitant]
     Active Substance: CHLORAMPHENICOL
     Dosage: 1 DROP, 4X/DAY
     Dates: start: 20161020, end: 20161027
  19. METHYLPREDNISOLONE ACETATE. [Concomitant]
     Active Substance: METHYLPREDNISOLONE ACETATE
     Dosage: 120 MG, UNK
     Route: 030
     Dates: start: 20160901, end: 20160902

REACTIONS (2)
  - Potentiating drug interaction [Recovered/Resolved]
  - Sedation [Recovered/Resolved]

NARRATIVE: CASE EVENT DATE: 20161103
